FAERS Safety Report 23506285 (Version 1)
Quarter: 2024Q1

REPORT INFORMATION
  Report Type: Spontaneous
  Country: US (occurrence: None)
  Receive Date: 20240208
  Receipt Date: 20240208
  Transmission Date: 20240410
  Serious: Yes (Hospitalization)
  Sender: FDA-Public Use
  Company Number: None

PATIENT
  Age: 67 Year
  Sex: Female

DRUGS (19)
  1. TEZSPIRE [Suspect]
     Active Substance: TEZEPELUMAB-EKKO
     Indication: Asthma
     Dosage: OTHER QUANTITY : 210 MG/1.91ML;?FREQUENCY : MONTHLY;?
     Route: 058
     Dates: start: 20220802
  2. TEZSPIRE [Suspect]
     Active Substance: TEZEPELUMAB-EKKO
     Dosage: OTHER QUANTITY : 1 SYRINGE;?FREQUENCY : MONTHLY;?
     Route: 058
  3. AMLODIPINE [Concomitant]
  4. ATORVASTATI [Concomitant]
  5. HUMALOG [Concomitant]
  6. HYDROCHLOROTHIAZIDE [Concomitant]
     Active Substance: HYDROCHLOROTHIAZIDE
  7. HYDROXYZINE HYDROCHLORIDE [Concomitant]
     Active Substance: HYDROXYZINE HYDROCHLORIDE
  8. ISOSORBIDE MONONITRATE [Concomitant]
     Active Substance: ISOSORBIDE MONONITRATE
  9. LIPITOR [Concomitant]
     Active Substance: ATORVASTATIN CALCIUM
  10. LISINOPRIL [Concomitant]
  11. MONTELUKAST [Concomitant]
     Active Substance: MONTELUKAST SODIUM
  12. MULTIVITAMIN ADLT 50+ [Concomitant]
  13. NOVOLOG [Concomitant]
     Active Substance: INSULIN ASPART
  14. OZEMPIC [Concomitant]
     Active Substance: SEMAGLUTIDE
  15. POT CHLORIDE [Concomitant]
  16. PRAZOSIN HCL [Concomitant]
  17. SINGULAIR [Concomitant]
     Active Substance: MONTELUKAST SODIUM
  18. TRELEGY AER [Concomitant]
  19. TRESIBA FLEX [Concomitant]

REACTIONS (2)
  - Pancreatitis [None]
  - Influenza [None]

NARRATIVE: CASE EVENT DATE: 20240201
